FAERS Safety Report 8049873-4 (Version None)
Quarter: 2011Q4

REPORT INFORMATION
  Report Type: 
  Country: None (occurrence: None)
  Receive Date: 20111212
  Receipt Date: 20110322
  Transmission Date: 20120403
  Serious: Yes (Other)
  Sender: FDA-Public Use
  Company Number: US-1185571

PATIENT
  Sex: Female
  Weight: 61.2356 kg

DRUGS (2)
  1. TIMOLOL MALEATE [Suspect]
     Dosage: (OPHTHALMIC)
     Route: 047
     Dates: start: 20110101
  2. SYNTHROID [Concomitant]

REACTIONS (1)
  - BLOOD PRESSURE INCREASED [None]
